FAERS Safety Report 10618154 (Version 2)
Quarter: 2015Q1

REPORT INFORMATION
  Report Type: Spontaneous
  Country: US (occurrence: US)
  Receive Date: 20141202
  Receipt Date: 20150106
  Transmission Date: 20150720
  Serious: Yes (Other)
  Sender: FDA-Public Use
  Company Number: US-DRREDDYS-USA/USA/14/0044677

PATIENT
  Age: 42 Year
  Sex: Female

DRUGS (7)
  1. AMPHOTERICIN B. [Suspect]
     Active Substance: AMPHOTERICIN B
     Indication: CHORIORETINITIS
  2. FLUCONAZOLE. [Suspect]
     Active Substance: FLUCONAZOLE
     Indication: CHORIORETINITIS
     Route: 048
  3. FLUCONAZOLE. [Suspect]
     Active Substance: FLUCONAZOLE
     Route: 048
  4. VORICONAZOLE. [Suspect]
     Active Substance: VORICONAZOLE
     Indication: CHORIORETINITIS
  5. VORICONAZOLE. [Suspect]
     Active Substance: VORICONAZOLE
     Route: 048
  6. AMBISOME [Suspect]
     Active Substance: AMPHOTERICIN B
     Indication: CHORIORETINITIS
     Route: 042
  7. FLUCYTOSINE. [Suspect]
     Active Substance: FLUCYTOSINE
     Indication: CHORIORETINITIS
     Route: 048

REACTIONS (4)
  - Disease progression [Unknown]
  - Drug ineffective [Unknown]
  - Product quality issue [Unknown]
  - Visual acuity reduced [Not Recovered/Not Resolved]
